FAERS Safety Report 4310844-2 (Version None)
Quarter: 2004Q1

REPORT INFORMATION
  Report Type: 
  Country: None (occurrence: None)
  Receive Date: 20040303
  Receipt Date: 20040217
  Transmission Date: 20041129
  Serious: Yes (Death)
  Sender: FDA-Public Use
  Company Number: NSADSS2003022238

PATIENT
  Age: 51 Year
  Sex: Male
  Weight: 58.9676 kg

DRUGS (4)
  1. DURAGESIC [Suspect]
     Indication: CANCER PAIN
     Dosage: SEE IMAGE
     Route: 062
     Dates: start: 19990304, end: 19990305
  2. DURAGESIC [Suspect]
     Indication: CANCER PAIN
     Dosage: SEE IMAGE
     Route: 062
     Dates: start: 19990305, end: 19990306
  3. MORPHINE SULFATE [Suspect]
     Indication: POST PROCEDURAL PAIN
     Dosage: 4 MG/HR, INTRAVENOUS
     Route: 042
     Dates: start: 19990227, end: 19990305
  4. VICODIN [Concomitant]

REACTIONS (5)
  - BRONCHOPNEUMONIA [None]
  - OVERDOSE [None]
  - RESPIRATORY RATE DECREASED [None]
  - SEDATION [None]
  - SOMNOLENCE [None]
